FAERS Safety Report 13185569 (Version 1)
Quarter: 2017Q1

REPORT INFORMATION
  Report Type: Report from Study
  Country: None (occurrence: BR)
  Receive Date: 20170203
  Receipt Date: 20170203
  Transmission Date: 20170428
  Serious: Yes (Other)
  Sender: FDA-Public Use
  Company Number: BR-ABBVIE-17P-020-1860131-00

PATIENT
  Age: 58 Year
  Sex: Female
  Weight: 72 kg

DRUGS (14)
  1. HUMIRA [Suspect]
     Active Substance: ADALIMUMAB
     Indication: RHEUMATOID ARTHRITIS
     Route: 058
     Dates: start: 20130101
  2. RANITIDINE. [Concomitant]
     Active Substance: RANITIDINE
     Indication: PROPHYLAXIS
     Route: 048
     Dates: start: 20160521, end: 201607
  3. MAXILERG [Concomitant]
     Indication: DRY EYE
  4. OMEPRAZOLE. [Concomitant]
     Active Substance: OMEPRAZOLE
     Indication: GASTRIC DISORDER
  5. RANITIDINE. [Concomitant]
     Active Substance: RANITIDINE
     Indication: ABDOMINAL PAIN UPPER
  6. MAXILERG [Concomitant]
     Indication: EYE PRURITUS
     Dosage: 1 DROP IN EACH EYE DAILY
     Dates: start: 20170116
  7. TEGRETOL [Concomitant]
     Active Substance: CARBAMAZEPINE
     Indication: ARRHYTHMIA
     Route: 048
     Dates: start: 1992
  8. ENALAPRIL [Concomitant]
     Active Substance: ENALAPRIL
     Indication: HYPERTENSION
     Route: 048
  9. RANITIDINE. [Concomitant]
     Active Substance: RANITIDINE
     Indication: GASTRIC DISORDER
  10. PURAN [Concomitant]
     Active Substance: LEVOTHYROXINE SODIUM
     Indication: HYPERTHYROIDISM
     Route: 048
  11. NATIFA [Concomitant]
     Active Substance: ESTRADIOL
     Indication: MENOPAUSE
     Route: 048
  12. RIVOTRIL [Concomitant]
     Active Substance: CLONAZEPAM
     Indication: ARRHYTHMIA
     Route: 048
     Dates: start: 1992
  13. OMEPRAZOLE. [Concomitant]
     Active Substance: OMEPRAZOLE
     Indication: PROPHYLAXIS
     Route: 048
     Dates: start: 201606, end: 201608
  14. METFORMIN [Concomitant]
     Active Substance: METFORMIN HYDROCHLORIDE
     Indication: DIABETES MELLITUS
     Route: 048

REACTIONS (8)
  - Discomfort [Unknown]
  - Incision site swelling [Unknown]
  - Vitamin D deficiency [Recovered/Resolved]
  - Flatulence [Unknown]
  - Immunodeficiency [Recovered/Resolved]
  - Skin papilloma [Recovering/Resolving]
  - Abdominal pain [Unknown]
  - Chest pain [Unknown]

NARRATIVE: CASE EVENT DATE: 201608
